FAERS Safety Report 12483076 (Version 2)
Quarter: 2016Q2

REPORT INFORMATION
  Report Type: Spontaneous
  Country: US (occurrence: US)
  Receive Date: 20160620
  Receipt Date: 20160624
  Transmission Date: 20160815
  Serious: No
  Sender: FDA-Public Use
  Company Number: US-BIOGEN-2016BI00248178

PATIENT
  Sex: Female

DRUGS (1)
  1. TECFIDERA [Suspect]
     Active Substance: DIMETHYL FUMARATE
     Indication: MULTIPLE SCLEROSIS
     Route: 065
     Dates: start: 20160419

REACTIONS (16)
  - Fall [Recovered/Resolved]
  - Headache [Not Recovered/Not Resolved]
  - Groin infection [Unknown]
  - Swelling [Recovered/Resolved]
  - Tremor [Not Recovered/Not Resolved]
  - Facial pain [Unknown]
  - Abasia [Recovered/Resolved]
  - Arthropod bite [Recovered/Resolved]
  - Infection [Unknown]
  - Heart rate abnormal [Unknown]
  - Kidney infection [Not Recovered/Not Resolved]
  - Pain [Not Recovered/Not Resolved]
  - Peripheral swelling [Recovered/Resolved]
  - Vision blurred [Unknown]
  - Urinary retention [Unknown]
  - Contusion [Unknown]
